FAERS Safety Report 15564194 (Version 1)
Quarter: 2018Q4

REPORT INFORMATION
  Report Type: Spontaneous
  Country: NG (occurrence: NG)
  Receive Date: 20181030
  Receipt Date: 20181030
  Transmission Date: 20190205
  Serious: Yes (Life-Threatening, Hospitalization, Other)
  Sender: FDA-Public Use
  Company Number: NG-ACCORD-088911

PATIENT
  Age: 31 Year
  Sex: Female
  Weight: 60 kg

DRUGS (11)
  1. PARACETAMOL [Concomitant]
     Active Substance: ACETAMINOPHEN
     Indication: ANALGESIC THERAPY
     Route: 042
  2. FLUPHENAZINE [Suspect]
     Active Substance: FLUPHENAZINE
     Indication: ADJUSTMENT DISORDER WITH DEPRESSED MOOD
     Dosage: STAT
     Route: 030
  3. AMITRIPTYLINE [Suspect]
     Active Substance: AMITRIPTYLINE
     Indication: ADJUSTMENT DISORDER WITH DEPRESSED MOOD
     Dosage: NOCTE
     Route: 048
  4. PROPOFOL. [Suspect]
     Active Substance: PROPOFOL
     Indication: GENERAL ANAESTHESIA
     Route: 042
  5. TRAMADOL. [Concomitant]
     Active Substance: TRAMADOL
     Indication: ANALGESIC THERAPY
     Route: 042
  6. KETOROLAC [Concomitant]
     Active Substance: KETOROLAC\KETOROLAC TROMETHAMINE
     Indication: ANALGESIC THERAPY
     Route: 042
  7. ISOFLURANE. [Suspect]
     Active Substance: ISOFLURANE
     Indication: MAINTENANCE OF ANAESTHESIA
     Dosage: IN OXYGEN-AIR MIXTURE
  8. BUPIVACAINE. [Suspect]
     Active Substance: BUPIVACAINE
     Indication: ANAESTHESIA
  9. ATRACURIUM [Concomitant]
     Active Substance: ATRACURIUM
     Route: 042
  10. TRIHEXYPHENIDYL [Concomitant]
     Active Substance: TRIHEXYPHENIDYL
     Indication: ADJUSTMENT DISORDER WITH DEPRESSED MOOD
     Route: 048
  11. SUXAMETHONIUM [Suspect]
     Active Substance: SUCCINYLCHOLINE
     Indication: GENERAL ANAESTHESIA
     Route: 042

REACTIONS (2)
  - Pneumonia aspiration [Recovering/Resolving]
  - Neuroleptic malignant syndrome [Recovering/Resolving]
